FAERS Safety Report 24186389 (Version 6)
Quarter: 2025Q3

REPORT INFORMATION
  Report Type: Spontaneous
  Country: CA (occurrence: CA)
  Receive Date: 20240808
  Receipt Date: 20250902
  Transmission Date: 20251020
  Serious: Yes (Other)
  Sender: INTERCEPT PHARMACEUTICALS
  Company Number: CA-ADVANZ PHARMA-202407006233

PATIENT
  Age: 64 Year
  Sex: Female

DRUGS (68)
  1. OCALIVA [Suspect]
     Active Substance: OBETICHOLIC ACID
     Indication: Primary biliary cholangitis
     Route: 048
     Dates: start: 20230922
  2. OCALIVA [Suspect]
     Active Substance: OBETICHOLIC ACID
     Route: 048
  3. OCALIVA [Suspect]
     Active Substance: OBETICHOLIC ACID
     Route: 048
  4. BEZAFIBRATE [Suspect]
     Active Substance: BEZAFIBRATE
     Indication: Product used for unknown indication
  5. URSODIOL [Concomitant]
     Active Substance: URSODIOL
     Indication: Primary biliary cholangitis
     Dates: start: 20210311
  6. GABAPENTIN [Concomitant]
     Active Substance: GABAPENTIN
  7. GABAPENTIN [Concomitant]
     Active Substance: GABAPENTIN
  8. GABAPENTIN [Concomitant]
     Active Substance: GABAPENTIN
  9. GABAPENTIN [Concomitant]
     Active Substance: GABAPENTIN
  10. GABAPENTIN [Concomitant]
     Active Substance: GABAPENTIN
  11. GABAPENTIN [Concomitant]
     Active Substance: GABAPENTIN
  12. GABAPENTIN [Concomitant]
     Active Substance: GABAPENTIN
  13. PERINDOPRIL [Concomitant]
     Active Substance: PERINDOPRIL
  14. PERINDOPRIL [Concomitant]
     Active Substance: PERINDOPRIL
  15. PERINDOPRIL [Concomitant]
     Active Substance: PERINDOPRIL
  16. PERINDOPRIL [Concomitant]
     Active Substance: PERINDOPRIL
  17. PANTOPRAZOLE SODIUM [Concomitant]
     Active Substance: PANTOPRAZOLE SODIUM
  18. PANTOPRAZOLE SODIUM [Concomitant]
     Active Substance: PANTOPRAZOLE SODIUM
  19. PANTOPRAZOLE SODIUM [Concomitant]
     Active Substance: PANTOPRAZOLE SODIUM
  20. PANTOPRAZOLE SODIUM [Concomitant]
     Active Substance: PANTOPRAZOLE SODIUM
  21. DULOXETINE [Concomitant]
     Active Substance: DULOXETINE
  22. DULOXETINE [Concomitant]
     Active Substance: DULOXETINE
  23. DULOXETINE [Concomitant]
     Active Substance: DULOXETINE
  24. DULOXETINE [Concomitant]
     Active Substance: DULOXETINE
  25. DULOXETINE [Concomitant]
     Active Substance: DULOXETINE
  26. DULOXETINE [Concomitant]
     Active Substance: DULOXETINE
  27. DULOXETINE [Concomitant]
     Active Substance: DULOXETINE
  28. ATORVASTATIN [Concomitant]
     Active Substance: ATORVASTATIN
  29. ATORVASTATIN [Concomitant]
     Active Substance: ATORVASTATIN
  30. ATORVASTATIN [Concomitant]
     Active Substance: ATORVASTATIN
  31. ATORVASTATIN [Concomitant]
     Active Substance: ATORVASTATIN
  32. NORTRIPTYLINE [Concomitant]
     Active Substance: NORTRIPTYLINE
  33. NORTRIPTYLINE [Concomitant]
     Active Substance: NORTRIPTYLINE
  34. NORTRIPTYLINE [Concomitant]
     Active Substance: NORTRIPTYLINE
  35. NORTRIPTYLINE [Concomitant]
     Active Substance: NORTRIPTYLINE
  36. NORTRIPTYLINE [Concomitant]
     Active Substance: NORTRIPTYLINE
  37. NORTRIPTYLINE [Concomitant]
     Active Substance: NORTRIPTYLINE
  38. NORTRIPTYLINE [Concomitant]
     Active Substance: NORTRIPTYLINE
  39. DOMPERIDONE [Concomitant]
     Active Substance: DOMPERIDONE
  40. DOMPERIDONE [Concomitant]
     Active Substance: DOMPERIDONE
  41. DOMPERIDONE [Concomitant]
     Active Substance: DOMPERIDONE
  42. DOMPERIDONE [Concomitant]
     Active Substance: DOMPERIDONE
  43. DOMPERIDONE [Concomitant]
     Active Substance: DOMPERIDONE
  44. DOMPERIDONE [Concomitant]
     Active Substance: DOMPERIDONE
  45. DOMPERIDONE [Concomitant]
     Active Substance: DOMPERIDONE
  46. VITAMIN D NOS [Concomitant]
     Active Substance: CHOLECALCIFEROL\ERGOCALCIFEROL
  47. RISEDRONATE SODIUM [Concomitant]
     Active Substance: RISEDRONATE SODIUM
  48. RISEDRONATE SODIUM [Concomitant]
     Active Substance: RISEDRONATE SODIUM
  49. RISEDRONATE SODIUM [Concomitant]
     Active Substance: RISEDRONATE SODIUM
  50. RISEDRONATE SODIUM [Concomitant]
     Active Substance: RISEDRONATE SODIUM
  51. RISEDRONATE SODIUM [Concomitant]
     Active Substance: RISEDRONATE SODIUM
  52. RISEDRONATE SODIUM [Concomitant]
     Active Substance: RISEDRONATE SODIUM
  53. RISEDRONATE SODIUM [Concomitant]
     Active Substance: RISEDRONATE SODIUM
  54. LORAZEPAM [Concomitant]
     Active Substance: LORAZEPAM
  55. LORAZEPAM [Concomitant]
     Active Substance: LORAZEPAM
  56. LORAZEPAM [Concomitant]
     Active Substance: LORAZEPAM
  57. LORAZEPAM [Concomitant]
     Active Substance: LORAZEPAM
  58. LORAZEPAM [Concomitant]
     Active Substance: LORAZEPAM
  59. LORAZEPAM [Concomitant]
     Active Substance: LORAZEPAM
  60. LORAZEPAM [Concomitant]
     Active Substance: LORAZEPAM
  61. ALBUTEROL [Concomitant]
     Active Substance: ALBUTEROL
  62. ALBUTEROL [Concomitant]
     Active Substance: ALBUTEROL
  63. ALBUTEROL [Concomitant]
     Active Substance: ALBUTEROL
  64. ALBUTEROL [Concomitant]
     Active Substance: ALBUTEROL
  65. ALBUTEROL [Concomitant]
     Active Substance: ALBUTEROL
  66. ALBUTEROL [Concomitant]
     Active Substance: ALBUTEROL
  67. ALBUTEROL [Concomitant]
     Active Substance: ALBUTEROL
  68. VITAMINS [Concomitant]
     Active Substance: VITAMINS

REACTIONS (7)
  - Myocardial infarction [Unknown]
  - Gastrooesophageal reflux disease [Unknown]
  - Depressed mood [Unknown]
  - Chest pain [Unknown]
  - Anxiety [Unknown]
  - Bilirubin conjugated increased [Recovered/Resolved]
  - Blood alkaline phosphatase increased [Recovering/Resolving]

NARRATIVE: CASE EVENT DATE: 20240713
